FAERS Safety Report 21256439 (Version 2)
Quarter: 2022Q4

REPORT INFORMATION
  Report Type: Spontaneous
  Country: BE (occurrence: BE)
  Receive Date: 20220826
  Receipt Date: 20221018
  Transmission Date: 20230113
  Serious: Yes (Life-Threatening)
  Sender: FDA-Public Use
  Company Number: BE-Accord-269662

PATIENT
  Age: 40 Year
  Sex: Female
  Weight: 80 kg

DRUGS (4)
  1. PACLITAXEL [Suspect]
     Active Substance: PACLITAXEL
     Indication: Ovarian cancer
     Dosage: 6 MG/ML CONCENTRATE FOR SOLUTION FOR INFUSION?336 MG/3 H
     Route: 042
     Dates: start: 20220803, end: 20220803
  2. SOLU-MEDROL [Concomitant]
     Active Substance: METHYLPREDNISOLONE SODIUM SUCCINATE
     Indication: Premedication
     Route: 042
     Dates: start: 20220803, end: 20220803
  3. APREPITANT [Concomitant]
     Active Substance: APREPITANT
     Indication: Premedication
     Dates: start: 20220803, end: 20220803
  4. CETIRIZINE HYDROCHLORIDE [Concomitant]
     Active Substance: CETIRIZINE HYDROCHLORIDE
     Indication: Premedication
     Dates: start: 20220803, end: 20220803

REACTIONS (8)
  - Anaphylactic shock [Recovered/Resolved]
  - Cardio-respiratory arrest [Recovered/Resolved]
  - Haemodynamic instability [Recovered/Resolved]
  - Bronchospasm [Recovered/Resolved]
  - Metabolic acidosis [Recovered/Resolved]
  - Hepatitis [Recovered/Resolved]
  - Acute kidney injury [Recovered/Resolved]
  - Hypersensitivity [Unknown]

NARRATIVE: CASE EVENT DATE: 20220803
